FAERS Safety Report 6161443-1 (Version None)
Quarter: 2009Q2

REPORT INFORMATION
  Report Type: 
  Country: None (occurrence: None)
  Receive Date: 20090421
  Receipt Date: 20090416
  Transmission Date: 20091009
  Serious: Yes (Death, Other)
  Sender: FDA-Public Use
  Company Number: FR-BRISTOL-MYERS SQUIBB COMPANY-14437032

PATIENT
  Age: 44 Year
  Sex: Male

DRUGS (2)
  1. ABILIFY [Suspect]
     Indication: DELUSION
     Dates: start: 20080601, end: 20081119
  2. LEPONEX [Suspect]
     Dates: start: 20081101

REACTIONS (3)
  - DRUG INEFFECTIVE [None]
  - GASTROINTESTINAL INFECTION [None]
  - SEPTIC SHOCK [None]
